FAERS Safety Report 6138239-X (Version None)
Quarter: 2009Q1

REPORT INFORMATION
  Report Type: 
  Country: None (occurrence: None)
  Receive Date: 20090331
  Receipt Date: 20090320
  Transmission Date: 20090719
  Serious: Yes (Other)
  Sender: FDA-Public Use
  Company Number: B0496984A

PATIENT
  Sex: Male

DRUGS (5)
  1. TELZIR [Suspect]
     Indication: HIV INFECTION
     Route: 048
     Dates: start: 20060726, end: 20060807
  2. COMBIVIR [Suspect]
     Indication: HIV INFECTION
     Route: 065
     Dates: start: 20040101, end: 20060701
  3. VIREAD [Suspect]
     Indication: HIV INFECTION
     Route: 065
     Dates: start: 20040101, end: 20060701
  4. NORVIR [Concomitant]
     Indication: HIV INFECTION
     Dosage: 100MG TWICE PER DAY
     Route: 048
     Dates: start: 20060726, end: 20060802
  5. TRUVADA [Concomitant]
     Indication: HIV INFECTION
     Route: 048
     Dates: start: 20060726, end: 20060807

REACTIONS (7)
  - BLOOD BILIRUBIN INCREASED [None]
  - DIARRHOEA [None]
  - DRUG RESISTANCE [None]
  - FATIGUE [None]
  - HEPATIC CIRRHOSIS [None]
  - JAUNDICE [None]
  - VOMITING [None]
